FAERS Safety Report 10960145 (Version 1)
Quarter: 2015Q1

REPORT INFORMATION
  Report Type: Spontaneous
  Country: NL (occurrence: None)
  Receive Date: 20150325
  Receipt Date: 20150325
  Transmission Date: 20150721
  Serious: Yes (Death)
  Sender: FDA-Public Use
  Company Number: FK201501307

PATIENT
  Age: 87 Year
  Sex: Male

DRUGS (9)
  1. AVODART [Concomitant]
     Active Substance: DUTASTERIDE
  2. ANANDRON (NILUTAMIDE) [Concomitant]
  3. OXYCODIN (OXYCODONE HYDROCHLORIDE) [Concomitant]
  4. THIOPENTAL (THIOPENTAL) (THIOPENTAL) [Suspect]
     Active Substance: THIOPENTAL
     Indication: EUTHANASIA
     Dosage: 2 MG, 1 IN 1 TOTAL
  5. OMEPRAZOLE. [Concomitant]
     Active Substance: OMEPRAZOLE
  6. ROCURONIUMBROMID KABI 10 MG/ML (ROCURONIUM BROMIDE) (ROCURONIUM BROMIDE) [Suspect]
     Active Substance: ROCURONIUM BROMIDE
     Indication: EUTHANASIA
     Dosage: 150 MG, 1 IN 1 TOTAL
  7. FENTANYL PATCHES (FENTANYL) [Concomitant]
  8. CA/ D3 (LEKOVIT CA) [Concomitant]
  9. ALFUZOSINE (ALFUZOSIN HYDROCHLORIDE) [Concomitant]

REACTIONS (1)
  - Drug effect delayed [None]

NARRATIVE: CASE EVENT DATE: 20150213
